FAERS Safety Report 6828888-5 (Version None)
Quarter: 2010Q3

REPORT INFORMATION
  Report Type: 
  Country: None (occurrence: None)
  Receive Date: 20100709
  Receipt Date: 20070223
  Transmission Date: 20110219
  Serious: No
  Sender: FDA-Public Use
  Company Number: US-PFIZER INC-2007014943

PATIENT
  Sex: Female
  Weight: 72.57 kg

DRUGS (2)
  1. CHANTIX [Suspect]
     Indication: SMOKING CESSATION THERAPY
     Dates: start: 20070116
  2. PAROXETINE HCL [Concomitant]
     Indication: ANXIETY

REACTIONS (3)
  - ABNORMAL FAECES [None]
  - SKIN ODOUR ABNORMAL [None]
  - WEIGHT INCREASED [None]
